FAERS Safety Report 9325272 (Version 37)
Quarter: 2022Q2

REPORT INFORMATION
  Report Type: Other
  Country: CA (occurrence: None)
  Receive Date: 20130604
  Receipt Date: 20220608
  Transmission Date: 20220720
  Serious: Yes (Hospitalization, Other)
  Sender: FDA-Public Use
  Company Number: CA-ROCHE-1229027

PATIENT
  Age: 61 Year
  Sex: Female
  Weight: 81 kg

DRUGS (44)
  1. RITUXAN [Suspect]
     Active Substance: RITUXIMAB
     Indication: Rheumatoid arthritis
     Dosage: DATE OF LAST INFUSION: 26/FEB/2016
     Route: 042
     Dates: start: 20130514
  2. RITUXAN [Suspect]
     Active Substance: RITUXIMAB
     Route: 042
     Dates: start: 20160201
  3. PIPERACILLIN SODIUM\TAZOBACTAM SODIUM [Suspect]
     Active Substance: PIPERACILLIN SODIUM\TAZOBACTAM SODIUM
     Indication: Infection
     Route: 042
  4. DIPHENHYDRAMINE HYDROCHLORIDE [Concomitant]
     Active Substance: DIPHENHYDRAMINE HYDROCHLORIDE
     Indication: Premedication
     Route: 048
     Dates: start: 20130514
  5. ACETAMINOPHEN [Concomitant]
     Active Substance: ACETAMINOPHEN
     Indication: Premedication
     Route: 048
     Dates: start: 20130514
  6. ARAVA [Concomitant]
     Active Substance: LEFLUNOMIDE
  7. CIPRALEX [Concomitant]
     Active Substance: ESCITALOPRAM OXALATE
  8. LORAZEPAM [Concomitant]
     Active Substance: LORAZEPAM
  9. RAMIPRIL [Concomitant]
     Active Substance: RAMIPRIL
  10. LASIX [Concomitant]
     Active Substance: FUROSEMIDE
  11. NITROGLYCERIN [Concomitant]
     Active Substance: NITROGLYCERIN
  12. TYLENOL [Concomitant]
     Active Substance: ACETAMINOPHEN
  13. AMLODIPINE [Concomitant]
     Active Substance: AMLODIPINE BESYLATE
  14. NEXIUM [Concomitant]
     Active Substance: ESOMEPRAZOLE MAGNESIUM
  15. WARFARIN [Concomitant]
     Active Substance: WARFARIN
     Dosage: 2MG/3MG
  16. SPIRIVA [Concomitant]
     Active Substance: TIOTROPIUM BROMIDE MONOHYDRATE
  17. ADVAIR HFA [Concomitant]
     Active Substance: FLUTICASONE PROPIONATE\SALMETEROL XINAFOATE
  18. VENTOLIN [Concomitant]
     Active Substance: ALBUTEROL SULFATE
  19. COUMADIN [Concomitant]
     Active Substance: WARFARIN SODIUM
  20. METHYLPREDNISOLONE [Concomitant]
     Active Substance: METHYLPREDNISOLONE
     Indication: Premedication
     Route: 042
     Dates: start: 20130514
  21. PREDNISONE [Concomitant]
     Active Substance: PREDNISONE
  22. CODEINE [Concomitant]
     Active Substance: CODEINE
  23. OXYGEN [Concomitant]
     Active Substance: OXYGEN
  24. ZOPICLONE [Concomitant]
     Active Substance: ZOPICLONE
  25. IMOVANE [Concomitant]
     Active Substance: ZOPICLONE
  26. MONTELUKAST [Concomitant]
     Active Substance: MONTELUKAST SODIUM
     Indication: Seasonal allergy
  27. FUROSEMIDE [Concomitant]
     Active Substance: FUROSEMIDE
  28. DIGOXIN [Concomitant]
     Active Substance: DIGOXIN
  29. LEFLUNOMIDE [Concomitant]
     Active Substance: LEFLUNOMIDE
  30. ALBUTEROL [Concomitant]
     Active Substance: ALBUTEROL
  31. NITROGLYCERIN [Concomitant]
     Active Substance: NITROGLYCERIN
  32. XARELTO [Concomitant]
     Active Substance: RIVAROXABAN
  33. ZOPICLONE [Concomitant]
     Active Substance: ZOPICLONE
  34. ANORO ELLIPTA [Concomitant]
     Active Substance: UMECLIDINIUM BROMIDE\VILANTEROL TRIFENATATE
  35. ESCITALOPRAM [Concomitant]
     Active Substance: ESCITALOPRAM OXALATE
  36. MAGNESIUM [Concomitant]
     Active Substance: MAGNESIUM
  37. NITROGLYCERIN [Concomitant]
     Active Substance: NITROGLYCERIN
  38. OLANZAPINE [Concomitant]
     Active Substance: OLANZAPINE
  39. ALBUTEROL [Concomitant]
     Active Substance: ALBUTEROL
  40. DIGOXIN [Concomitant]
     Active Substance: DIGOXIN
  41. VITAMIN D3 [Concomitant]
     Active Substance: CHOLECALCIFEROL
  42. ZYPREXA [Concomitant]
     Active Substance: OLANZAPINE
  43. SOLIFENACIN [Concomitant]
     Active Substance: SOLIFENACIN
  44. CLONAZEPAM [Concomitant]
     Active Substance: CLONAZEPAM

REACTIONS (60)
  - International normalised ratio increased [Recovered/Resolved]
  - Localised infection [Recovered/Resolved]
  - Influenza [Unknown]
  - Hypotension [Not Recovered/Not Resolved]
  - Renal cancer [Unknown]
  - Hepatitis [Not Recovered/Not Resolved]
  - Benign breast neoplasm [Not Recovered/Not Resolved]
  - Benign neoplasm of thyroid gland [Not Recovered/Not Resolved]
  - Limb deformity [Unknown]
  - C-reactive protein increased [Unknown]
  - Rheumatoid arthritis [Not Recovered/Not Resolved]
  - Fall [Unknown]
  - Influenza [Unknown]
  - Balance disorder [Recovered/Resolved]
  - Diarrhoea [Unknown]
  - Asthenia [Not Recovered/Not Resolved]
  - Malaise [Unknown]
  - Weight decreased [Unknown]
  - Cellulitis [Unknown]
  - Nausea [Unknown]
  - Musculoskeletal discomfort [Unknown]
  - Arthralgia [Unknown]
  - Abdominal discomfort [Unknown]
  - Joint swelling [Recovering/Resolving]
  - Grip strength decreased [Not Recovered/Not Resolved]
  - Arthropathy [Unknown]
  - Musculoskeletal stiffness [Unknown]
  - Fatigue [Unknown]
  - Blood immunoglobulin G decreased [Unknown]
  - Pain [Unknown]
  - Blood pressure diastolic abnormal [Unknown]
  - Vomiting [Unknown]
  - Respiratory rate increased [Unknown]
  - Blood pressure systolic increased [Unknown]
  - Blood pressure fluctuation [Unknown]
  - Blood pressure diastolic abnormal [Unknown]
  - Blood pressure increased [Unknown]
  - Nausea [Recovered/Resolved]
  - Neck pain [Not Recovered/Not Resolved]
  - Peripheral swelling [Not Recovered/Not Resolved]
  - Influenza like illness [Not Recovered/Not Resolved]
  - Infusion related reaction [Unknown]
  - Heart rate increased [Unknown]
  - Weight increased [Unknown]
  - Nausea [Recovered/Resolved]
  - Retching [Recovered/Resolved]
  - Blood pressure increased [Recovered/Resolved]
  - Oxygen saturation abnormal [Recovered/Resolved]
  - Musculoskeletal disorder [Unknown]
  - Dyspnoea [Unknown]
  - Heart rate increased [Unknown]
  - Infusion related reaction [Recovered/Resolved]
  - Arthralgia [Not Recovered/Not Resolved]
  - Musculoskeletal stiffness [Not Recovered/Not Resolved]
  - Movement disorder [Unknown]
  - Abdominal pain [Unknown]
  - Dyspepsia [Unknown]
  - Rash erythematous [Unknown]
  - Blood pressure fluctuation [Unknown]
  - Anaemia [Unknown]

NARRATIVE: CASE EVENT DATE: 20130515
